FAERS Safety Report 6580956-1 (Version None)
Quarter: 2010Q1

REPORT INFORMATION
  Report Type: 
  Country: None (occurrence: None)
  Receive Date: 20100215
  Receipt Date: 20100204
  Transmission Date: 20100710
  Serious: Yes (Life-Threatening, Hospitalization, Other)
  Sender: FDA-Public Use
  Company Number: JP-BRISTOL-MYERS SQUIBB COMPANY-14808794

PATIENT
  Age: 66 Year
  Sex: Male
  Weight: 60 kg

DRUGS (11)
  1. ABILIFY [Suspect]
     Indication: SCHIZOPHRENIA
     Dosage: 12MG/QD:19AUG-16SEP09 24MG/D:07-08SEP,2D 30MG:09-17SEP,9D 12MG:01-19OCT,19D 24MG/D:20OCT-ONG
     Route: 048
     Dates: start: 20090819
  2. ABILIFY [Suspect]
     Indication: SCHIZOPHRENIA
     Dosage: 0.1% ONGOING; 20OCT-28OCT2009,24MG; 29OCT09 30MG
     Route: 048
     Dates: start: 20091020
  3. RISPERDAL [Suspect]
     Indication: SCHIZOPHRENIA
     Dosage: LIQUID
     Route: 048
     Dates: start: 20090917, end: 20090917
  4. LONASEN [Suspect]
     Indication: SCHIZOPHRENIA
     Dosage: INTERRUPTED ON 17SEP09,168D. RESTARTED ON 24SEP09-08NOV09.46DAY.START DOSE-24MG;24MG 09NOV-ONG
     Route: 048
     Dates: start: 20090316
  5. CHLORPROMAZINE [Suspect]
     Indication: SCHIZOPHRENIA
     Dosage: 250MG/D:04MAR-18AUG09 150MG/D:19AUG-06SEP09 75MG/D:07SEP-17SEP09
     Route: 048
     Dates: start: 20090304, end: 20090917
  6. TASMOLIN [Suspect]
     Route: 048
     Dates: end: 20090917
  7. MAGNESIUM OXIDE [Suspect]
     Route: 048
     Dates: end: 20090917
  8. GLUCOBAY [Suspect]
     Dosage: INTERRUPTED ON 17SEP09 RESTARTED ON AN UNKNOWN DATE
     Route: 048
     Dates: start: 20090512, end: 20090917
  9. VASOLAN [Suspect]
     Route: 048
     Dates: end: 20090917
  10. SODIUM PICOSULFATE [Suspect]
     Route: 048
     Dates: end: 20090917
  11. GLUCONSAN-K [Concomitant]
     Route: 048
     Dates: start: 20091026

REACTIONS (3)
  - GASTRIC ULCER [None]
  - INTESTINAL OBSTRUCTION [None]
  - URINARY RETENTION [None]
